FAERS Safety Report 8327174-4 (Version None)
Quarter: 2012Q2

REPORT INFORMATION
  Report Type: 
  Country: None (occurrence: None)
  Receive Date: 20120501
  Receipt Date: 20120417
  Transmission Date: 20120825
  Serious: Yes (Death)
  Sender: FDA-Public Use
  Company Number: US-BAXTER-2012BAX001113

PATIENT
  Sex: Female
  Weight: 93 kg

DRUGS (20)
  1. DIANEAL [Suspect]
  2. CLONIDINE HCL [Concomitant]
  3. RENVELA [Concomitant]
  4. OXYCODONE HCL [Concomitant]
  5. METOPROLOL TARTRATE [Concomitant]
  6. METOLAZONE [Concomitant]
  7. CALCITRIOL [Concomitant]
  8. ZANTAC [Concomitant]
  9. ALLOPURINOL [Concomitant]
  10. LANTUS [Concomitant]
  11. ALBUTEROL [Concomitant]
  12. ASPIRIN [Concomitant]
  13. EXTRANEAL [Suspect]
     Indication: PERITONEAL DIALYSIS
     Route: 033
  14. EXTRANEAL [Suspect]
  15. ERGOCALCIFEROL [Concomitant]
  16. DIANEAL [Suspect]
     Indication: PERITONEAL DIALYSIS
     Route: 033
  17. FOLIC ACID [Concomitant]
  18. CARDIZEM [Concomitant]
  19. LIPITOR [Concomitant]
  20. LASIX [Concomitant]

REACTIONS (3)
  - SEPTIC SHOCK [None]
  - PNEUMONIA [None]
  - GENERAL PHYSICAL HEALTH DETERIORATION [None]
